FAERS Safety Report 8559988-X (Version None)
Quarter: 2012Q3

REPORT INFORMATION
  Report Type: 
  Country: None (occurrence: None)
  Receive Date: 20120802
  Receipt Date: 20120730
  Transmission Date: 20120928
  Serious: Yes (Other)
  Sender: FDA-Public Use
  Company Number: US-PFIZER INC-2012151100

PATIENT
  Sex: Female
  Weight: 97.5 kg

DRUGS (6)
  1. GABAPENTIN [Suspect]
     Indication: SCIATIC NERVE INJURY
     Dosage: 600 MG, EVERY 4 HRS
  2. MORPHINE [Concomitant]
     Indication: BACK PAIN
     Dosage: UNK
  3. OXYCODONE [Concomitant]
     Indication: BACK PAIN
     Dosage: 10/325MG, TWO TABLET FOUR TIMES A DAY
  4. CELEBREX [Suspect]
     Dosage: UNK
  5. ROBAXIN [Concomitant]
     Indication: MUSCLE RELAXANT THERAPY
     Dosage: 750 MG, AS NEEDED
  6. METHADONE [Concomitant]
     Indication: BACK PAIN
     Dosage: UNK

REACTIONS (4)
  - HYPERKERATOSIS [None]
  - PAIN [None]
  - DRUG INEFFECTIVE [None]
  - BONE DISORDER [None]
